FAERS Safety Report 8879052 (Version 1)
Quarter: 2012Q4

REPORT INFORMATION
  Report Type: Spontaneous
  Country: US (occurrence: None)
  Receive Date: 20121031
  Receipt Date: 20121031
  Transmission Date: 20130627
  Serious: Yes (Other)
  Sender: FDA-Public Use
  Company Number: None

PATIENT
  Age: 59 Year
  Sex: Female
  Weight: 69.4 kg

DRUGS (1)
  1. MULTIHANCE [Suspect]
     Dosage: Rt. Arm

REACTIONS (5)
  - Nausea [None]
  - Headache [None]
  - Neck pain [None]
  - Blood pressure increased [None]
  - Contrast media reaction [None]
